FAERS Safety Report 10217889 (Version 1)
Quarter: 2014Q2

REPORT INFORMATION
  Report Type: Spontaneous
  Country: AU (occurrence: AU)
  Receive Date: 20140605
  Receipt Date: 20140605
  Transmission Date: 20141212
  Serious: Yes (Other)
  Sender: FDA-Public Use
  Company Number: AU-ROCHE-1412665

PATIENT
  Age: 43 Year
  Sex: Female
  Weight: 77 kg

DRUGS (3)
  1. GANCICLOVIR [Suspect]
     Indication: ANTIVIRAL PROPHYLAXIS
     Route: 065
  2. GANCICLOVIR [Suspect]
     Dosage: 100 MG/12 H
     Route: 065
  3. GANCICLOVIR [Suspect]
     Dosage: 100 MG/24 H
     Route: 065

REACTIONS (1)
  - Bone marrow failure [Unknown]
